FAERS Safety Report 9728400 (Version 1)
Quarter: 2013Q4

REPORT INFORMATION
  Report Type: Report from Study
  Country: CN (occurrence: CN)
  Receive Date: 20131204
  Receipt Date: 20131204
  Transmission Date: 20140711
  Serious: Yes (Other)
  Sender: FDA-Public Use
  Company Number: CN-ASTELLAS-2013US012540

PATIENT
  Sex: 0

DRUGS (7)
  1. ERLOTINIB [Suspect]
     Indication: NON-SMALL CELL LUNG CANCER
     Dosage: 150 MG, UID/QD, 1 HOUR BEFORE MEAL OR 2 HOUR AFTER MEAL
     Route: 048
  2. PEMETREXED DISODIUM [Suspect]
     Indication: NON-SMALL CELL LUNG CANCER
     Dosage: 500 MG/M2, UID/QD, 1 H IN THE FIRST DAY, 21 DAYS FOR A CYCLE.
     Route: 042
  3. TAXOTERE [Suspect]
     Indication: NON-SMALL CELL LUNG CANCER
     Dosage: 75 MG/M2, }1 H IN THE FIRST DAY, 21 DAYS FOR ONE CYCLE.
     Route: 042
  4. DEXAMETHASONE [Concomitant]
     Indication: PRODUCT USED FOR UNKNOWN INDICATION
     Dosage: 4 MG, BID, ONE DAY BEFORE THE TREATMENT FOR CONSECUTIVE 3 DAYS.
     Route: 048
  5. DEXAMETHASONE [Concomitant]
     Dosage: 8 MG, BID, THE DAY BEFORE  TAXOTERE, FOR CONSECUTIVE 3 DAYS
     Route: 048
  6. TROPISETRON [Concomitant]
     Indication: PRODUCT USED FOR UNKNOWN INDICATION
     Dosage: UNK
     Route: 065
  7. VITAMIN B12                        /00056201/ [Concomitant]
     Indication: PRODUCT USED FOR UNKNOWN INDICATION
     Dosage: 1 MG, 1 WEEK BEFORE PEMETREXED IN EVERY THREE CYCLES
     Route: 030

REACTIONS (1)
  - Leukopenia [Unknown]
